FAERS Safety Report 11010263 (Version 1)
Quarter: 2015Q2

REPORT INFORMATION
  Report Type: Spontaneous
  Country: PT (occurrence: PT)
  Receive Date: 20150410
  Receipt Date: 20150410
  Transmission Date: 20150821
  Serious: Yes (Life-Threatening)
  Sender: FDA-Public Use
  Company Number: PT-ACTAVIS-2014-26150

PATIENT
  Age: 45 Year
  Sex: Female
  Weight: 68 kg

DRUGS (5)
  1. EPIRRUBICINA MEDAC [Concomitant]
     Indication: BREAST CANCER
     Dosage: UNK
     Route: 042
     Dates: start: 201502, end: 201502
  2. DOCETAXEL ACTAVIS [Suspect]
     Active Substance: DOCETAXEL
     Indication: BREAST CANCER
     Dosage: 100 MG/M2, 1/ THREE WEEKS; AT A RATE OF 120 ML / H
     Route: 042
     Dates: start: 20141117
  3. DEXAMETASONA                       /00016001/ [Concomitant]
     Indication: ALLERGY PROPHYLAXIS
     Dosage: 20 MG, DAILY; AS PART OF PRE-MEDICATION REGIMEN.
     Route: 042
     Dates: start: 201502, end: 201502
  4. ONDANSETROM                        /00955301/ [Concomitant]
     Indication: ALLERGY PROPHYLAXIS
     Dosage: 8 MG, DAILY; AS PART OF PRE-MEDICATION REGIMEN.
     Route: 042
     Dates: start: 201502, end: 201502
  5. PREDNISOLONA                       /00016201/ [Concomitant]
     Indication: ALLERGY PROPHYLAXIS
     Dosage: 40 MG, 6 DOSAGES AT EVERY 2 DAYS;
     Route: 048
     Dates: start: 20141116, end: 20141117

REACTIONS (5)
  - Injection site discolouration [Not Recovered/Not Resolved]
  - Anaphylactic reaction [Recovered/Resolved]
  - Back pain [Recovered/Resolved]
  - Injection site pain [Not Recovered/Not Resolved]
  - Erythema [Recovered/Resolved]

NARRATIVE: CASE EVENT DATE: 20141117
